FAERS Safety Report 8384850-5 (Version None)
Quarter: 2012Q2

REPORT INFORMATION
  Report Type: 
  Country: None (occurrence: None)
  Receive Date: 20120524
  Receipt Date: 20120522
  Transmission Date: 20120825
  Serious: Yes (Other)
  Sender: FDA-Public Use
  Company Number: US-PFIZER INC-2011052001

PATIENT
  Sex: Male

DRUGS (8)
  1. AMITRIPTYLINE [Concomitant]
     Dosage: 75 MG, 1X/DAY BEFORE BED
  2. PROMETHAZINE [Concomitant]
     Dosage: 25 MG, 3X/DAY
  3. OXYMORPHONE [Concomitant]
     Dosage: 30MG TABLETE SUSTAINED RETARD/2XDAY
  4. ZANAFLEX [Concomitant]
     Dosage: 4 MG, 3X/DAY
  5. LYRICA [Suspect]
     Dosage: 150 MG, 3X/DAY
  6. AMITRIPTYLINE [Concomitant]
     Dosage: 100 MG, 1X/DAY, BEFORE BED
  7. OXYCODONE [Concomitant]
     Dosage: 15 MG, 3X/DAY
  8. METHADONE [Concomitant]
     Dosage: 5 MG, 1 EVERY 8 HOURS

REACTIONS (9)
  - SEASONAL ALLERGY [None]
  - SPINAL DISORDER [None]
  - ARTHRITIS [None]
  - INTERVERTEBRAL DISC DEGENERATION [None]
  - BACK PAIN [None]
  - MIGRAINE [None]
  - INTERVERTEBRAL DISC PROTRUSION [None]
  - GASTROOESOPHAGEAL REFLUX DISEASE [None]
  - SLEEP DISORDER [None]
